FAERS Safety Report 5251177-X (Version None)
Quarter: 2007Q1

REPORT INFORMATION
  Report Type: 
  Country: None (occurrence: None)
  Receive Date: 20070228
  Receipt Date: 20061004
  Transmission Date: 20070707
  Serious: No
  Sender: FDA-Public Use
  Company Number: US-GLAXOSMITHKLINE-A0619756A

PATIENT
  Age: 43 Year
  Sex: Female

DRUGS (4)
  1. LAMICTAL [Suspect]
     Indication: BIPOLAR DISORDER
     Route: 048
  2. MULTIPLE MEDICATIONS [Concomitant]
  3. KLONOPIN [Concomitant]
     Dosage: 1MG UNKNOWN
     Route: 048
  4. WELLBUTRIN SR [Concomitant]
     Dosage: 150MG TWICE PER DAY
     Route: 048

REACTIONS (1)
  - AMNESIA [None]
